FAERS Safety Report 11643431 (Version 1)
Quarter: 2015Q4

REPORT INFORMATION
  Report Type: Spontaneous
  Country: US (occurrence: None)
  Receive Date: 20151019
  Receipt Date: 20151019
  Transmission Date: 20160304
  Serious: No
  Sender: FDA-Public Use
  Company Number: None

PATIENT
  Age: 61 Year
  Sex: Female
  Weight: 52.62 kg

DRUGS (5)
  1. XANAX [Concomitant]
     Active Substance: ALPRAZOLAM
  2. OFLOXACIN 10 ML [Suspect]
     Active Substance: OFLOXACIN
     Indication: ANTIBIOTIC PROPHYLAXIS
     Dosage: INTO THE EYE, 5 TIMES A DAY
     Dates: start: 20131005, end: 20131011
  3. MULTIPLE VITAMINS [Concomitant]
     Active Substance: VITAMINS
  4. FIBER GUMMIES [Concomitant]
  5. HARVONIA [Concomitant]

REACTIONS (2)
  - Drug dispensing error [None]
  - Photophobia [None]

NARRATIVE: CASE EVENT DATE: 20131005
